FAERS Safety Report 16474742 (Version 1)
Quarter: 2019Q2

REPORT INFORMATION
  Report Type: Spontaneous
  Country: MX (occurrence: MX)
  Receive Date: 20190625
  Receipt Date: 20190625
  Transmission Date: 20190711
  Serious: Yes (Other)
  Sender: FDA-Public Use
  Company Number: MX-PFIZER INC-2019267013

PATIENT
  Age: 53 Year
  Sex: Female

DRUGS (1)
  1. SIROLIMUS. [Suspect]
     Active Substance: SIROLIMUS
     Dosage: UNK

REACTIONS (3)
  - Hypertriglyceridaemia [Unknown]
  - Hypercholesterolaemia [Unknown]
  - Bicytopenia [Recovered/Resolved]
